FAERS Safety Report 10567812 (Version 4)
Quarter: 2015Q2

REPORT INFORMATION
  Report Type: Spontaneous
  Country: US (occurrence: None)
  Receive Date: 20141104
  Receipt Date: 20150604
  Transmission Date: 20150821
  Serious: Yes (Hospitalization)
  Sender: FDA-Public Use
  Company Number: 2014MPI01355

PATIENT
  Age: 38 Year
  Sex: Female
  Weight: 86.8 kg

DRUGS (9)
  1. DOXORUBICIN (DOXORUBICIN) INJECTION [Suspect]
     Active Substance: DOXORUBICIN
     Indication: HODGKIN^S DISEASE
     Route: 042
     Dates: start: 20140926, end: 20141009
  2. VINBLASTINE [Suspect]
     Active Substance: VINBLASTINE
     Indication: HODGKIN^S DISEASE
     Route: 042
     Dates: start: 20140926, end: 20141009
  3. BRENTUXIMAB VEDOTIN (BRENTUXIMAB VEDOTIN) INJECTION [Suspect]
     Active Substance: BRENTUXIMAB VEDOTIN
     Indication: HODGKIN^S DISEASE
     Route: 042
     Dates: start: 20140926, end: 20141009
  4. SENNA /00142201/ (SENNA ALEXANDRINA) [Concomitant]
  5. HYDROXYZINE HYDROCHLORIDE. [Concomitant]
     Active Substance: HYDROXYZINE HYDROCHLORIDE
  6. DACARBAZINE (DACARBAZINE) INJECTION [Suspect]
     Active Substance: DACARBAZINE
     Indication: HODGKIN^S DISEASE
     Route: 042
     Dates: start: 20140926, end: 20141009
  7. ZOFRAN /00955302/ (ONDANSETRON HYDROCHLORIDE) [Concomitant]
  8. COLACE [Concomitant]
     Active Substance: DOCUSATE SODIUM
  9. PANTOPRAZOLE [Concomitant]
     Active Substance: PANTOPRAZOLE SODIUM

REACTIONS (12)
  - Pulmonary embolism [None]
  - Large intestinal obstruction [None]
  - Oropharyngeal pain [None]
  - Back pain [None]
  - Dizziness [None]
  - Vomiting [None]
  - Febrile neutropenia [None]
  - Constipation [None]
  - Ileus [None]
  - Asthenia [None]
  - Hepatic steatosis [None]
  - Chest pain [None]

NARRATIVE: CASE EVENT DATE: 20141018
